FAERS Safety Report 21994352 (Version 2)
Quarter: 2023Q2

REPORT INFORMATION
  Report Type: Report from Study
  Country: MX (occurrence: MX)
  Receive Date: 20230215
  Receipt Date: 20230410
  Transmission Date: 20230722
  Serious: Yes (Other)
  Sender: FDA-Public Use
  Company Number: MX-002147023-NVSC2022MX234848

PATIENT
  Age: 60 Year
  Sex: Female
  Weight: 56 kg

DRUGS (7)
  1. CYCLOSPORINE [Suspect]
     Active Substance: CYCLOSPORINE
     Indication: Prophylaxis against transplant rejection
     Dosage: 1 DOSAGE FORM, BID (25 MG)
     Route: 048
     Dates: start: 19920518
  2. CYCLOSPORINE [Suspect]
     Active Substance: CYCLOSPORINE
     Indication: Renal transplant
     Dosage: 1 DOSAGE FORM, BID (25 MG) (29 YEARS AGO) (HALF A YEAR AGO APPROXIMATELY)
     Route: 048
  3. CYCLOSPORINE [Suspect]
     Active Substance: CYCLOSPORINE
     Dosage: 2 DOSAGE FORM, BID (25 MG)
     Route: 048
     Dates: start: 202212
  4. CYCLOSPORINE [Suspect]
     Active Substance: CYCLOSPORINE
     Dosage: 1 DOSAGE FORM, BID (25 MG)
     Route: 048
     Dates: start: 202302
  5. TELMISARTAN [Suspect]
     Active Substance: TELMISARTAN
     Indication: Prophylaxis
     Dosage: 1 DOSAGE FORM, QD (STARTED 29 YEARS AGO)
     Route: 048
  6. ALLOPURINOL [Concomitant]
     Active Substance: ALLOPURINOL
     Indication: Prophylaxis
     Dosage: 1 DOSAGE FORM, QD
     Route: 048
  7. METICORTEN [Concomitant]
     Active Substance: PREDNISONE
     Indication: Renal transplant
     Dosage: 1 DOSAGE FORM, QD (STARTED 29 YEARS AGO)
     Route: 048

REACTIONS (6)
  - Renal impairment [Recovering/Resolving]
  - Kidney transplant rejection [Unknown]
  - Condition aggravated [Unknown]
  - Weight increased [Unknown]
  - Body height increased [Unknown]
  - Anaemia [Recovered/Resolved]

NARRATIVE: CASE EVENT DATE: 20221216
